FAERS Safety Report 14555915 (Version 2)
Quarter: 2018Q2

REPORT INFORMATION
  Report Type: Report from Study
  Country: FR (occurrence: FR)
  Receive Date: 20180221
  Receipt Date: 20180420
  Transmission Date: 20180711
  Serious: Yes (Hospitalization)
  Sender: FDA-Public Use
  Company Number: FR-ROCHE-1026701

PATIENT
  Age: 59 Year
  Sex: Female
  Weight: 63 kg

DRUGS (9)
  1. TRASTUZUMAB. [Suspect]
     Active Substance: TRASTUZUMAB
     Indication: COLORECTAL CANCER
     Route: 042
     Dates: start: 20110927
  2. ASPIRIN. [Concomitant]
     Active Substance: ASPIRIN
     Route: 065
     Dates: start: 20111109
  3. BEVACIZUMAB. [Suspect]
     Active Substance: BEVACIZUMAB
     Indication: COLORECTAL CANCER
     Route: 042
     Dates: start: 20111108
  4. DEXAMYL [Concomitant]
     Active Substance: AMOBARBITAL\DEXTROAMPHETAMINE SULFATE
     Dosage: AS REQUIRED
     Route: 065
     Dates: start: 20111219
  5. LYSANXIA [Concomitant]
     Active Substance: PRAZEPAM
     Route: 065
     Dates: start: 2011
  6. VESICARE [Concomitant]
     Active Substance: SOLIFENACIN SUCCINATE
     Route: 065
     Dates: start: 20111205
  7. GLYCEROLUM [Concomitant]
     Dosage: AS REQUIRED
     Route: 065
     Dates: start: 20111128
  8. DOCETAXEL. [Suspect]
     Active Substance: DOCETAXEL
     Indication: COLORECTAL CANCER
     Route: 065
     Dates: start: 20110927
  9. DEFIBROTIDE [Concomitant]
     Active Substance: DEFIBROTIDE (BOVINE)
     Indication: COLORECTAL CANCER
     Dosage: AS REQUIRED
     Route: 065
     Dates: start: 20111108

REACTIONS (2)
  - Lung disorder [Not Recovered/Not Resolved]
  - Febrile bone marrow aplasia [Not Recovered/Not Resolved]

NARRATIVE: CASE EVENT DATE: 20111227
